FAERS Safety Report 9266553 (Version 1)
Quarter: 2013Q2

REPORT INFORMATION
  Report Type: Report from Study
  Country: US (occurrence: US)
  Receive Date: 20130502
  Receipt Date: 20130502
  Transmission Date: 20140414
  Serious: Yes (Death, Hospitalization, Other)
  Sender: FDA-Public Use
  Company Number: US-BAYER-2012-096646

PATIENT
  Age: 74 Year
  Sex: Male
  Weight: 79.82 kg

DRUGS (17)
  1. SORAFENIB (RAF KINASE INHIBITOR) [Suspect]
     Indication: RENAL CANCER
     Dosage: 400 MG, BID
     Route: 048
     Dates: start: 201106
  2. SORAFENIB (RAF KINASE INHIBITOR) [Suspect]
     Indication: RENAL CANCER
     Dosage: DECREASED DOSE (NOS)
  3. SORAFENIB (RAF KINASE INHIBITOR) [Suspect]
     Indication: RENAL CANCER
     Dosage: 200 MG, TID
  4. SORAFENIB (RAF KINASE INHIBITOR) [Suspect]
     Indication: RENAL CANCER
     Dosage: 200 MG, TID
     Route: 048
     Dates: start: 20120913
  5. ALBUTEROL SULFATE [Concomitant]
     Dosage: UNK UNK, TID
  6. LASIX [Concomitant]
     Indication: URINARY RETENTION
  7. LASIX [Concomitant]
     Indication: FLUID OVERLOAD
  8. OMEPRAZOLE [Concomitant]
     Indication: GASTROOESOPHAGEAL REFLUX DISEASE
     Dosage: 20 MG, QD
  9. GLIMEPIRIDE [Concomitant]
     Dosage: 1 MG, QD
  10. MEGESTROL ACETATE [Concomitant]
     Dosage: 40 MG, QD
  11. AMLODIPINE BESYLATE [Concomitant]
     Dosage: 2.5 MG, QD
     Route: 048
  12. AVELOX [Concomitant]
     Dosage: 400 MG, UNK
     Route: 048
  13. BENZONATATE [Concomitant]
     Dosage: 150 MG, TID
     Route: 048
  14. DIFLUCAN [Concomitant]
     Dosage: 100 MG, QD
     Route: 048
  15. GLIPIZIDE [Concomitant]
     Dosage: 5 MG, QD
     Route: 048
  16. LOMOTIL [ATROPINE SULFATE,DIPHENOXYLATE HYDROCHLORIDE] [Concomitant]
     Dosage: UNK UNK, QID
     Route: 048
  17. MEGACE [Concomitant]
     Dosage: UNK
     Route: 048

REACTIONS (10)
  - Prostatic operation [Recovered/Resolved]
  - Prostatomegaly [None]
  - Diarrhoea [None]
  - Palmar-plantar erythrodysaesthesia syndrome [None]
  - Renal cancer [Fatal]
  - Pneumonia aspiration [None]
  - Emphysema [None]
  - Renal failure acute [None]
  - Dermatitis bullous [None]
  - Rash generalised [None]
